FAERS Safety Report 13928984 (Version 1)
Quarter: 2017Q3

REPORT INFORMATION
  Report Type: Spontaneous
  Country: US (occurrence: US)
  Receive Date: 20170901
  Receipt Date: 20170901
  Transmission Date: 20171127
  Serious: No
  Sender: FDA-Public Use
  Company Number: PHEH2017US027441

PATIENT
  Age: 18 Year
  Sex: Male
  Weight: 74.83 kg

DRUGS (1)
  1. JADENU [Suspect]
     Active Substance: DEFERASIROX
     Indication: SICKLE CELL ANAEMIA
     Dosage: 1800 MG, QD
     Route: 048
     Dates: start: 20150623, end: 20170824

REACTIONS (1)
  - Serum ferritin decreased [Unknown]

NARRATIVE: CASE EVENT DATE: 20170824
